FAERS Safety Report 15389133 (Version 2)
Quarter: 2018Q4

REPORT INFORMATION
  Report Type: Report from Study
  Country: US (occurrence: US)
  Receive Date: 20180917
  Receipt Date: 20181008
  Transmission Date: 20190204
  Serious: Yes (Death, Other)
  Sender: FDA-Public Use
  Company Number: US-TAKEDA-2018TUS027155

PATIENT
  Age: 32 Year
  Sex: Male

DRUGS (1)
  1. PONATINIB [Suspect]
     Active Substance: PONATINIB
     Indication: ACUTE LYMPHOCYTIC LEUKAEMIA
     Dosage: 30 MG, QD
     Route: 048
     Dates: start: 20180423

REACTIONS (17)
  - Device related thrombosis [Unknown]
  - Hypomagnesaemia [Unknown]
  - Death [Fatal]
  - Abdominal discomfort [Unknown]
  - Haemorrhoidal haemorrhage [Unknown]
  - Bone pain [Recovering/Resolving]
  - Constipation [Unknown]
  - Respiratory failure [Unknown]
  - Fatigue [Unknown]
  - Sepsis [Unknown]
  - Pallor [Unknown]
  - Lichenification [Unknown]
  - Night sweats [Unknown]
  - Myalgia [Unknown]
  - Mucormycosis [Unknown]
  - Ischaemic hepatitis [Unknown]
  - Sinus tachycardia [Unknown]

NARRATIVE: CASE EVENT DATE: 20180905
